FAERS Safety Report 18261843 (Version 3)
Quarter: 2021Q3

REPORT INFORMATION
  Report Type: Report from Study
  Country: US (occurrence: US)
  Receive Date: 20200914
  Receipt Date: 20210723
  Transmission Date: 20211014
  Serious: No
  Sender: FDA-Public Use
  Company Number: NVSC2020US250633

PATIENT
  Age: 47 Year
  Sex: Female

DRUGS (2)
  1. ENTRESTO [Suspect]
     Active Substance: SACUBITRIL\VALSARTAN
     Dosage: 0.5 DF,BID (49.51 MG, HALF TABLET TWICE A DAY
     Route: 048
     Dates: start: 20200717
  2. ENTRESTO [Suspect]
     Active Substance: SACUBITRIL\VALSARTAN
     Indication: CARDIAC FAILURE
     Dosage: 1 DF,BID (49.51 MG,TWICE A DAY)
     Route: 048

REACTIONS (4)
  - Fatigue [Unknown]
  - Weight decreased [Unknown]
  - Wrong technique in product usage process [Unknown]
  - Asthenia [Unknown]

NARRATIVE: CASE EVENT DATE: 20200721
